FAERS Safety Report 20371063 (Version 1)
Quarter: 2022Q1

REPORT INFORMATION
  Report Type: Spontaneous
  Country: CN (occurrence: None)
  Receive Date: 20220124
  Receipt Date: 20220124
  Transmission Date: 20220423
  Serious: Yes (Hospitalization)
  Sender: FDA-Public Use
  Company Number: CN-Merck Healthcare KGaA-9293787

PATIENT
  Age: 29 Year
  Sex: Female
  Weight: 80 kg

DRUGS (3)
  1. LUVERIS [Suspect]
     Active Substance: LUTROPIN ALFA
     Indication: Infertility
     Route: 058
     Dates: start: 20211226, end: 20211227
  2. OVIDREL [Suspect]
     Active Substance: CHORIOGONADOTROPIN ALFA
     Indication: Infertility
     Route: 058
     Dates: start: 20211230, end: 20211230
  3. MENOTROPINS [Suspect]
     Active Substance: MENOTROPINS
     Indication: Infertility
     Route: 030
     Dates: start: 20211217, end: 20211228

REACTIONS (2)
  - Ovarian hyperstimulation syndrome [Recovering/Resolving]
  - Polycystic ovaries [Recovering/Resolving]

NARRATIVE: CASE EVENT DATE: 20220103
